FAERS Safety Report 9759565 (Version 1)
Quarter: 2013Q4

REPORT INFORMATION
  Report Type: Spontaneous
  Country: US (occurrence: US)
  Receive Date: 20131216
  Receipt Date: 20131216
  Transmission Date: 20140711
  Serious: No
  Sender: FDA-Public Use
  Company Number: US-GILEAD-2010-0028052

PATIENT
  Age: 58 Year
  Sex: Male
  Weight: 79.5 kg

DRUGS (6)
  1. LETAIRIS [Suspect]
     Indication: PULMONARY ARTERIAL HYPERTENSION
     Route: 048
     Dates: start: 20100310
  2. ASPIRIN [Concomitant]
  3. NYSTATIN [Concomitant]
  4. ACIPHEX [Concomitant]
  5. MUCINEX [Concomitant]
  6. NYQUIL [Concomitant]

REACTIONS (4)
  - Rhinorrhoea [Unknown]
  - Nasal congestion [Unknown]
  - Dyspnoea [Unknown]
  - Flushing [Unknown]
